FAERS Safety Report 8036328-6 (Version None)
Quarter: 2012Q1

REPORT INFORMATION
  Report Type: 
  Country: None (occurrence: None)
  Receive Date: 20120111
  Receipt Date: 20111104
  Transmission Date: 20120608
  Serious: No
  Sender: FDA-Public Use
  Company Number: US-GLAXOSMITHKLINE-A0952020A

PATIENT
  Age: 90 Year
  Sex: Male

DRUGS (5)
  1. JALYN [Suspect]
     Indication: BLADDER CANCER
     Dosage: 1CAP PER DAY
     Route: 048
     Dates: start: 20111102
  2. METOPROLOL SUCCINATE [Concomitant]
  3. PRIMIDONE [Concomitant]
  4. LEVOTHYROXINE SODIUM [Concomitant]
  5. COLESTIPOL HYDROCHLORIDE [Concomitant]

REACTIONS (2)
  - BLOOD PRESSURE DECREASED [None]
  - POLLAKIURIA [None]
